FAERS Safety Report 17212989 (Version 2)
Quarter: 2019Q4

REPORT INFORMATION
  Report Type: Spontaneous
  Country: US (occurrence: US)
  Receive Date: 20191230
  Receipt Date: 20191230
  Transmission Date: 20200122
  Serious: Yes (Hospitalization)
  Sender: FDA-Public Use
  Company Number: US-CELGENEUS-USA-20191209158

PATIENT
  Age: 50 Year
  Sex: Male
  Weight: 99.9 kg

DRUGS (1)
  1. ABRAXANE [Suspect]
     Active Substance: PACLITAXEL
     Indication: PRODUCT USED FOR UNKNOWN INDICATION
     Route: 065

REACTIONS (3)
  - Dehydration [Unknown]
  - Intestinal obstruction [Unknown]
  - Failure to thrive [Unknown]

NARRATIVE: CASE EVENT DATE: 20191223
